FAERS Safety Report 18339979 (Version 5)
Quarter: 2022Q2

REPORT INFORMATION
  Report Type: Spontaneous
  Country: US (occurrence: US)
  Receive Date: 20201002
  Receipt Date: 20220503
  Transmission Date: 20220720
  Serious: No
  Sender: FDA-Public Use
  Company Number: US-PFIZER INC-2020379550

PATIENT
  Age: 56 Year
  Sex: Female

DRUGS (1)
  1. LYRICA [Suspect]
     Active Substance: PREGABALIN
     Indication: Neuropathy peripheral
     Dosage: UNK
     Route: 048

REACTIONS (4)
  - Eye disorder [Unknown]
  - Visual impairment [Recovered/Resolved with Sequelae]
  - Illness [Not Recovered/Not Resolved]
  - Malaise [Unknown]
